FAERS Safety Report 17295191 (Version 5)
Quarter: 2025Q1

REPORT INFORMATION
  Report Type: Spontaneous
  Country: US (occurrence: US)
  Receive Date: 20200121
  Receipt Date: 20250319
  Transmission Date: 20250409
  Serious: Yes (Other)
  Sender: PFIZER
  Company Number: US-PFIZER INC-2020025753

PATIENT
  Age: 76 Year
  Sex: Female
  Weight: 81.633 kg

DRUGS (9)
  1. XELJANZ XR [Suspect]
     Active Substance: TOFACITINIB CITRATE
     Indication: Rheumatoid arthritis
     Dosage: 11 MG ONCE A DAY
     Dates: start: 2011
  2. XELJANZ XR [Suspect]
     Active Substance: TOFACITINIB CITRATE
     Dosage: 11 MG ONCE A DAY
     Dates: start: 2018
  3. LOSARTAN [Concomitant]
     Active Substance: LOSARTAN
     Dates: start: 2017
  4. AMLODIPINE [Concomitant]
     Active Substance: AMLODIPINE BESYLATE
     Dates: start: 2017
  5. LEVOTHYROXINE [Concomitant]
     Active Substance: LEVOTHYROXINE
     Dates: start: 2017
  6. METFORMIN [Concomitant]
     Active Substance: METFORMIN HYDROCHLORIDE
     Dates: start: 2017
  7. ATORVASTATIN [Concomitant]
     Active Substance: ATORVASTATIN
     Dates: start: 2017
  8. BUPROPION [Concomitant]
     Active Substance: BUPROPION
     Dates: start: 2017
  9. CARVEDILOL [Concomitant]
     Active Substance: CARVEDILOL
     Dates: start: 2017

REACTIONS (5)
  - Fall [Unknown]
  - Shoulder operation [Unknown]
  - Knee arthroplasty [Unknown]
  - Gait inability [Recovered/Resolved]
  - Musculoskeletal stiffness [Unknown]
